FAERS Safety Report 7199091-7 (Version None)
Quarter: 2010Q4

REPORT INFORMATION
  Report Type: 
  Country: None (occurrence: None)
  Receive Date: 20101124
  Receipt Date: 20100915
  Transmission Date: 20110411
  Serious: Yes (Other)
  Sender: FDA-Public Use
  Company Number: 018955

PATIENT
  Sex: Female

DRUGS (4)
  1. LACOSAMIDE [Suspect]
     Indication: EPILEPSY
     Dosage: (400 MG) ; (300 MG)
     Dates: end: 20100801
  2. LACOSAMIDE [Suspect]
     Indication: EPILEPSY
     Dosage: (400 MG) ; (300 MG)
     Dates: start: 20100801
  3. DILANTIN [Concomitant]
  4. PRENATAL VITAMINS /01549301/ [Concomitant]

REACTIONS (4)
  - CONVULSION [None]
  - DRUG EXPOSURE DURING PREGNANCY [None]
  - DYSPEPSIA [None]
  - FLATULENCE [None]
